FAERS Safety Report 11694035 (Version 3)
Quarter: 2016Q3

REPORT INFORMATION
  Report Type: Spontaneous
  Country: US (occurrence: US)
  Receive Date: 20151103
  Receipt Date: 20160811
  Transmission Date: 20161109
  Serious: Yes (Other)
  Sender: FDA-Public Use
  Company Number: US-APOTEX-2015AP013867

PATIENT
  Age: 16 Year
  Sex: Female

DRUGS (1)
  1. LEVETIRACETAM TABLETS [Suspect]
     Active Substance: LEVETIRACETAM
     Indication: EPILEPSY
     Dosage: 3 DF, Q.H.S.
     Route: 048
     Dates: start: 20150920

REACTIONS (3)
  - Drug ineffective [Not Recovered/Not Resolved]
  - Seizure [Not Recovered/Not Resolved]
  - Anticonvulsant drug level decreased [Not Recovered/Not Resolved]

NARRATIVE: CASE EVENT DATE: 20151003
